FAERS Safety Report 5320714-9 (Version None)
Quarter: 2007Q2

REPORT INFORMATION
  Report Type: 
  Country: None (occurrence: None)
  Receive Date: 20070502
  Receipt Date: 20070417
  Transmission Date: 20071010
  Serious: Yes (Hospitalization)
  Sender: FDA-Public Use
  Company Number: US019922

PATIENT
  Sex: 0

DRUGS (1)
  1. ACTIQ [Suspect]
     Indication: SEDATION

REACTIONS (1)
  - OXYGEN SATURATION DECREASED [None]
